FAERS Safety Report 13903321 (Version 2)
Quarter: 2017Q3

REPORT INFORMATION
  Report Type: Spontaneous
  Country: US (occurrence: US)
  Receive Date: 20170824
  Receipt Date: 20170911
  Transmission Date: 20171127
  Serious: No
  Sender: FDA-Public Use
  Company Number: US-PFIZER INC-2017360777

PATIENT
  Age: 69 Year
  Sex: Female

DRUGS (1)
  1. CYTOTEC [Suspect]
     Active Substance: MISOPROSTOL
     Dosage: 200 UG, UNK

REACTIONS (6)
  - Arthralgia [Unknown]
  - Bone swelling [Unknown]
  - Neck pain [None]
  - Musculoskeletal stiffness [Unknown]
  - Neck pain [Unknown]
  - Fatigue [Unknown]
